FAERS Safety Report 6199505-5 (Version None)
Quarter: 2009Q2

REPORT INFORMATION
  Report Type: 
  Country: None (occurrence: None)
  Receive Date: 20090522
  Receipt Date: 20090512
  Transmission Date: 20091009
  Serious: Yes (Hospitalization)
  Sender: FDA-Public Use
  Company Number: US-AVENTIS-200817683US

PATIENT
  Sex: Male
  Weight: 74.54 kg

DRUGS (7)
  1. KETEK [Suspect]
     Dosage: DOSE: UNK
     Dates: start: 20060601, end: 20060601
  2. AVELOX [Suspect]
     Dosage: DOSE: UNK
     Dates: start: 20060601, end: 20060601
  3. LOTREL [Concomitant]
     Dosage: DOSE: 5/20
  4. BENAZEPRIL HYDROCHLORIDE [Concomitant]
  5. LIPITOR [Concomitant]
  6. ASPIRIN [Concomitant]
     Dosage: DOSE: 81 (2 TABS)
  7. LEVAQUIN [Concomitant]

REACTIONS (17)
  - ALANINE AMINOTRANSFERASE INCREASED [None]
  - ANAEMIA [None]
  - ASPARTATE AMINOTRANSFERASE INCREASED [None]
  - BLOOD ALKALINE PHOSPHATASE INCREASED [None]
  - EOSINOPHILIA [None]
  - HEPATIC ENZYME INCREASED [None]
  - HYPONATRAEMIA [None]
  - LYMPHOCYTOSIS [None]
  - MARROW HYPERPLASIA [None]
  - MYALGIA [None]
  - PLASMACYTOSIS [None]
  - PYREXIA [None]
  - TEMPOROMANDIBULAR JOINT SYNDROME [None]
  - TESTICULAR SWELLING [None]
  - THROMBOCYTHAEMIA [None]
  - TREMOR [None]
  - WHITE BLOOD CELL COUNT INCREASED [None]
